FAERS Safety Report 8844421 (Version 1)
Quarter: 2012Q4

REPORT INFORMATION
  Report Type: Spontaneous
  Country: GB (occurrence: None)
  Receive Date: 20121012
  Receipt Date: 20121012
  Transmission Date: 20130627
  Serious: Yes (Hospitalization)
  Sender: FDA-Public Use
  Company Number: GER/UKI/12/0026131

PATIENT
  Age: 1 Year
  Sex: Male

DRUGS (2)
  1. MONTELUKAST [Suspect]
     Indication: WHEEZING
     Dosage: 4 mcg, 1 in 1 D, Unknown
  2. FLUTICASONE PROPIONATE [Suspect]
     Indication: WHEEZING
     Dosage: 100 mcg, 1 in 1 D, Unknown

REACTIONS (1)
  - Wheezing [None]
